FAERS Safety Report 7981854-9 (Version None)
Quarter: 2011Q4

REPORT INFORMATION
  Report Type: 
  Country: None (occurrence: None)
  Receive Date: 20111215
  Receipt Date: 20111209
  Transmission Date: 20120403
  Serious: Yes (Hospitalization, Congenital Anomaly, Other)
  Sender: FDA-Public Use
  Company Number: US-PFIZER INC-2011285526

PATIENT
  Sex: Female
  Weight: 4.085 kg

DRUGS (3)
  1. ADVAIR DISKUS 100/50 [Concomitant]
     Dosage: UNK
  2. ALBUTEROL [Concomitant]
     Dosage: UNK
  3. EFFEXOR [Suspect]
     Indication: MOOD SWINGS
     Dosage: 75 MG, 2X/DAY
     Route: 064

REACTIONS (15)
  - LARGE FOR DATES BABY [None]
  - ATRIAL SEPTAL DEFECT [None]
  - HYPERBILIRUBINAEMIA NEONATAL [None]
  - RESPIRATORY DISTRESS [None]
  - SEPSIS NEONATAL [None]
  - COARCTATION OF THE AORTA [None]
  - ATELECTASIS NEONATAL [None]
  - MATERNAL EXPOSURE TIMING UNSPECIFIED [None]
  - TRICUSPID VALVE INCOMPETENCE [None]
  - CARDIOMEGALY [None]
  - LEFT VENTRICULAR DYSFUNCTION [None]
  - MITRAL VALVE INCOMPETENCE [None]
  - PATENT DUCTUS ARTERIOSUS [None]
  - PULMONARY HYPERTENSION [None]
  - CYANOSIS [None]
